FAERS Safety Report 9248775 (Version 1)
Quarter: 2013Q1

REPORT INFORMATION
  Report Type: Spontaneous
  Country: US (occurrence: None)
  Receive Date: 20130305
  Receipt Date: 20130305
  Transmission Date: 20140127
  Serious: Yes (Hospitalization)
  Sender: FDA-Public Use
  Company Number: 163-21880-12091639 (0)

PATIENT
  Age: 83 Year
  Sex: Female
  Weight: 59.88 kg

DRUGS (6)
  1. REVLIMID [Suspect]
     Indication: PLASMA CELL MYELOMA
     Dosage: 10 MG, 21 IN 21 D, PO
     Route: 048
     Dates: start: 20120627
  2. THALOMID [Suspect]
     Dates: start: 200508
  3. DIGOXIN (DIGOXIN) [Concomitant]
  4. METOPOLOL (METOPROLOL) [Concomitant]
  5. VITAMIN B12 (CYANOCOBALAMIN) [Concomitant]
  6. MELPHALAN [Concomitant]

REACTIONS (1)
  - Pneumonia [None]
